FAERS Safety Report 23670548 (Version 1)
Quarter: 2024Q1

REPORT INFORMATION
  Report Type: Spontaneous
  Country: SK (occurrence: SK)
  Receive Date: 20240326
  Receipt Date: 20240326
  Transmission Date: 20240409
  Serious: Yes (Other)
  Sender: FDA-Public Use
  Company Number: None

PATIENT
  Sex: Female
  Weight: 129 kg

DRUGS (21)
  1. TREMFYA [Suspect]
     Active Substance: GUSELKUMAB
     Indication: Psoriasis
     Route: 058
     Dates: start: 202211, end: 202312
  2. TREMFYA [Suspect]
     Active Substance: GUSELKUMAB
  3. TREMFYA [Suspect]
     Active Substance: GUSELKUMAB
  4. AMLODIPINE BESYLATE\PERINDOPRIL ARGININE [Concomitant]
     Active Substance: AMLODIPINE BESYLATE\PERINDOPRIL ARGININE
     Route: 065
  5. BISOPROLOL [Concomitant]
     Active Substance: BISOPROLOL\BISOPROLOL FUMARATE
  6. XALATAN [Concomitant]
     Active Substance: LATANOPROST
  7. SPIRONOLACTONE [Concomitant]
     Active Substance: SPIRONOLACTONE
  8. OZEMPIC [Concomitant]
     Active Substance: SEMAGLUTIDE
     Route: 058
  9. METFORMIN [Concomitant]
     Active Substance: METFORMIN HYDROCHLORIDE
  10. ALLOPURINOL [Concomitant]
     Active Substance: ALLOPURINOL
  11. FUROSEMIDE [Concomitant]
     Active Substance: FUROSEMIDE
  12. EUTHYROX [Concomitant]
     Active Substance: LEVOTHYROXINE SODIUM
  13. URAPIDIL [Concomitant]
     Active Substance: URAPIDIL
  14. VENTOLIN [Concomitant]
     Active Substance: ALBUTEROL SULFATE
  15. ASPIRIN [Concomitant]
     Active Substance: ASPIRIN
  16. LEVOCETIRIZINE DIHYDROCHLORIDE [Concomitant]
     Active Substance: LEVOCETIRIZINE DIHYDROCHLORIDE
  17. FLUTICASONE PROPIONATE\SALMETEROL XINAFOATE [Concomitant]
     Active Substance: FLUTICASONE PROPIONATE\SALMETEROL XINAFOATE
  18. DIETARY SUPPLEMENT\HERBALS\MILK THISTLE [Concomitant]
     Active Substance: MILK THISTLE
  19. ACETAMINOPHEN\CAFFEINE\GUAIFENESIN [Concomitant]
     Active Substance: ACETAMINOPHEN\CAFFEINE\GUAIFENESIN
  20. DULOXETINE [Concomitant]
     Active Substance: DULOXETINE
  21. OZZION [Concomitant]

REACTIONS (1)
  - Pulmonary embolism [Recovered/Resolved]

NARRATIVE: CASE EVENT DATE: 20240208
